FAERS Safety Report 5275469-3 (Version None)
Quarter: 2007Q1

REPORT INFORMATION
  Report Type: 
  Country: None (occurrence: None)
  Receive Date: 20070326
  Receipt Date: 20070315
  Transmission Date: 20070707
  Serious: Yes (Other)
  Sender: FDA-Public Use
  Company Number: HQWYE802115MAR07

PATIENT
  Age: 81 Year
  Sex: Female

DRUGS (1)
  1. PROPRANOLOL HYDROCHLORIDE [Suspect]
     Indication: ARRHYTHMIA
     Route: 048
     Dates: start: 20061129, end: 20070206

REACTIONS (2)
  - CHARLES BONNET SYNDROME [None]
  - HALLUCINATION, VISUAL [None]
